FAERS Safety Report 19710853 (Version 1)
Quarter: 2021Q3

REPORT INFORMATION
  Report Type: Spontaneous
  Country: US (occurrence: US)
  Receive Date: 20210817
  Receipt Date: 20210817
  Transmission Date: 20211014
  Serious: No
  Sender: FDA-Public Use
  Company Number: NVSC2021US179388

PATIENT
  Sex: Female

DRUGS (1)
  1. KESIMPTA [Suspect]
     Active Substance: OFATUMUMAB
     Indication: RELAPSING MULTIPLE SCLEROSIS
     Dosage: 20 MG, QW
     Route: 058
     Dates: start: 20210801

REACTIONS (7)
  - Hypoaesthesia [Unknown]
  - Chills [Unknown]
  - Dizziness [Unknown]
  - Injection site erythema [Unknown]
  - Myalgia [Unknown]
  - Injection site pain [Unknown]
  - Device use issue [Unknown]
